FAERS Safety Report 9486088 (Version 3)
Quarter: 2013Q4

REPORT INFORMATION
  Report Type: Spontaneous
  Country: US (occurrence: US)
  Receive Date: 20130829
  Receipt Date: 20131113
  Transmission Date: 20140711
  Serious: Yes (Hospitalization)
  Sender: FDA-Public Use
  Company Number: US-JNJFOC-20130812849

PATIENT
  Age: 15 Year
  Sex: Male
  Weight: 48.2 kg

DRUGS (26)
  1. REMICADE [Suspect]
     Indication: CROHN^S DISEASE
     Dosage: 3RD DOSE. TOTAL 7 INFUSIONS.
     Route: 042
     Dates: start: 20130117
  2. REMICADE [Suspect]
     Indication: CROHN^S DISEASE
     Dosage: 4TH INFUSION
     Route: 042
     Dates: start: 20130228
  3. REMICADE [Suspect]
     Indication: CROHN^S DISEASE
     Dosage: 2 INFUSIONS
     Route: 042
     Dates: start: 20121205
  4. REMICADE [Suspect]
     Indication: CROHN^S DISEASE
     Route: 042
     Dates: start: 20130523
  5. REMICADE [Suspect]
     Indication: CROHN^S DISEASE
     Dosage: 3RD DOSE. TOTAL 7 INFUSIONS.
     Route: 042
     Dates: start: 20121219
  6. REMICADE [Suspect]
     Indication: CROHN^S DISEASE
     Route: 042
     Dates: start: 20130411
  7. REMICADE [Suspect]
     Indication: CROHN^S DISEASE
     Route: 042
     Dates: start: 20130703, end: 20130703
  8. ZOFRAN [Concomitant]
     Indication: PREMEDICATION
     Dosage: 6MG IV AND 6 MG PO
     Route: 042
     Dates: start: 20130411
  9. ZOFRAN [Concomitant]
     Indication: PREMEDICATION
     Route: 042
     Dates: start: 20130523
  10. BENADRYL [Concomitant]
     Indication: PREMEDICATION
     Dosage: 12.5MG -25MG IV/PO
     Route: 065
     Dates: start: 20121205
  11. BENADRYL [Concomitant]
     Indication: PREMEDICATION
     Route: 065
     Dates: start: 20121219
  12. BENADRYL [Concomitant]
     Indication: PREMEDICATION
     Route: 065
     Dates: start: 20130228
  13. BENADRYL [Concomitant]
     Indication: PREMEDICATION
     Route: 065
     Dates: start: 20130117
  14. TYLENOL [Concomitant]
     Indication: PREMEDICATION
     Route: 048
     Dates: start: 20130523
  15. TYLENOL [Concomitant]
     Indication: PREMEDICATION
     Route: 048
     Dates: start: 20130411
  16. TYLENOL [Concomitant]
     Indication: PREMEDICATION
     Route: 048
     Dates: start: 20130228
  17. TYLENOL [Concomitant]
     Indication: PREMEDICATION
     Route: 048
     Dates: start: 20130117
  18. TYLENOL [Concomitant]
     Indication: PREMEDICATION
     Route: 048
     Dates: start: 20121219
  19. TYLENOL [Concomitant]
     Indication: PREMEDICATION
     Route: 048
     Dates: start: 20130703
  20. TYLENOL [Concomitant]
     Indication: PREMEDICATION
     Dosage: 500-650MG
     Route: 048
     Dates: start: 20121205
  21. ENTOCORT [Concomitant]
     Route: 065
  22. FOLIC ACID [Concomitant]
     Route: 065
  23. VENLAFAXINE [Concomitant]
     Route: 065
  24. VITAMIN D [Concomitant]
     Route: 065
  25. CHOLECALCIFEROL [Concomitant]
     Route: 065
  26. ZOFRAN [Concomitant]
     Route: 048
     Dates: start: 20130703

REACTIONS (7)
  - Crohn^s disease [Unknown]
  - Feeling hot [Unknown]
  - Erythema [Unknown]
  - Drug specific antibody present [Unknown]
  - Vomiting [Unknown]
  - Drug level decreased [Unknown]
  - Infusion related reaction [Unknown]
